FAERS Safety Report 11842072 (Version 1)
Quarter: 2015Q4

REPORT INFORMATION
  Report Type: Spontaneous
  Country: US (occurrence: US)
  Receive Date: 20151216
  Receipt Date: 20151216
  Transmission Date: 20160305
  Serious: No
  Sender: FDA-Public Use
  Company Number: US-RB-073348-15

PATIENT
  Age: 37 Year

DRUGS (1)
  1. DELSYM [Suspect]
     Active Substance: DEXTROMETHORPHAN
     Indication: PRODUCT USED FOR UNKNOWN INDICATION
     Dosage: 20ML. TOOK  20ML; CONSUMER LAST USED THE PRODUCT ON 30-JAN-2015,FREQUENCY UNK
     Route: 048
     Dates: start: 20150130

REACTIONS (2)
  - Eye pruritus [Unknown]
  - Eye swelling [Unknown]

NARRATIVE: CASE EVENT DATE: 20150130
